FAERS Safety Report 7916472-1 (Version None)
Quarter: 2011Q4

REPORT INFORMATION
  Report Type: 
  Country: None (occurrence: None)
  Receive Date: 20111114
  Receipt Date: 20111101
  Transmission Date: 20120403
  Serious: Yes (Hospitalization)
  Sender: FDA-Public Use
  Company Number: ACO_26093_2011

PATIENT
  Age: 58 Year
  Sex: Female
  Weight: 30.8 kg

DRUGS (18)
  1. AMPYRA [Suspect]
     Indication: MULTIPLE SCLEROSIS
     Dosage: 10 MG, BID
     Dates: start: 20100323
  2. ATIVAN [Concomitant]
  3. LYRICA [Concomitant]
  4. SERZONE [Concomitant]
  5. POTASSIUM CHLORIDE [Concomitant]
  6. GILENYA [Suspect]
     Indication: MULTIPLE SCLEROSIS
     Dosage: 0.5 MG, QD, ORAL
     Route: 048
     Dates: start: 20110405, end: 20110711
  7. NEURONTIN [Concomitant]
  8. VITAMIN C /00008001/ (ASCORBIC ACID) [Concomitant]
  9. DULCOLAX /00064401/ (BISACODYL) [Concomitant]
  10. CALCIUM 600 + D (CALCIUM CARBONATE, COLECALCIFEROL) [Concomitant]
  11. VESICARE [Concomitant]
  12. THERAGRAN /00554301/ (VITAMINS NOS) [Concomitant]
  13. FLEET /00766901/ (SODIUM PHOSPHATE, SODIU MPHOSPHATE MONOBASIC (ANHYDR [Concomitant]
  14. LIORESAL [Suspect]
     Indication: PRODUCT USED FOR UNKNOWN INDICATION
     Dosage: 10 MG
  15. COPAXONE [Concomitant]
  16. AMBIEN [Concomitant]
  17. LOVENOX [Concomitant]
  18. FERROUS SULFATE TAB [Concomitant]

REACTIONS (14)
  - CARBON DIOXIDE INCREASED [None]
  - BILIRUBIN URINE [None]
  - MUSCULAR WEAKNESS [None]
  - ABDOMINAL DISCOMFORT [None]
  - CONSTIPATION [None]
  - JAUNDICE [None]
  - BLOOD CALCIUM DECREASED [None]
  - ASPARTATE AMINOTRANSFERASE INCREASED [None]
  - PROTEIN TOTAL DECREASED [None]
  - BLOOD ALBUMIN DECREASED [None]
  - HYPOKINESIA [None]
  - ABDOMINAL PAIN [None]
  - ALANINE AMINOTRANSFERASE INCREASED [None]
  - URINARY TRACT INFECTION [None]
